FAERS Safety Report 5796543-9 (Version None)
Quarter: 2008Q3

REPORT INFORMATION
  Report Type: 
  Country: None (occurrence: None)
  Receive Date: 20080701
  Receipt Date: 20080619
  Transmission Date: 20090109
  Serious: Yes (Life-Threatening, Hospitalization)
  Sender: FDA-Public Use
  Company Number: FR-WYE-H04729908

PATIENT
  Sex: Male

DRUGS (5)
  1. CORDARONE [Suspect]
     Indication: ATRIAL FIBRILLATION
     Route: 048
     Dates: start: 20070619, end: 20070829
  2. LAMALINE [Concomitant]
     Dosage: UNKNOWN
     Route: 048
  3. ACETAMINOPHEN [Concomitant]
     Dosage: UNKNOWN
     Route: 048
  4. PREVISCAN [Concomitant]
     Indication: ATRIAL FIBRILLATION
     Dosage: UNKNOWN
     Route: 048
     Dates: start: 20070619, end: 20070710
  5. LEXOMIL [Concomitant]
     Dosage: UNKNOWN
     Route: 048

REACTIONS (3)
  - PERICARDIAL HAEMORRHAGE [None]
  - PERICARDITIS [None]
  - PLEURISY [None]
